FAERS Safety Report 20940196 (Version 2)
Quarter: 2022Q2

REPORT INFORMATION
  Report Type: Spontaneous
  Country: US (occurrence: US)
  Receive Date: 20220609
  Receipt Date: 20220614
  Transmission Date: 20220720
  Serious: Yes (Other)
  Sender: FDA-Public Use
  Company Number: US-PFIZER INC-202200809490

PATIENT
  Age: 91 Year
  Sex: Male

DRUGS (1)
  1. IBRANCE [Suspect]
     Active Substance: PALBOCICLIB
     Indication: Neoplasm malignant
     Dosage: UNK

REACTIONS (7)
  - Ascites [Unknown]
  - Generalised oedema [Unknown]
  - White blood cell count decreased [Unknown]
  - Asthenia [Unknown]
  - Dysstasia [Unknown]
  - Hypophagia [Unknown]
  - Protein total decreased [Unknown]
